FAERS Safety Report 4872930-8 (Version None)
Quarter: 2006Q1

REPORT INFORMATION
  Report Type: 
  Country: None (occurrence: None)
  Receive Date: 20060105
  Receipt Date: 20050315
  Transmission Date: 20060701
  Serious: No
  Sender: FDA-Public Use
  Company Number: US-BRISTOL-MYERS SQUIBB COMPANY-12898987

PATIENT
  Sex: Female

DRUGS (1)
  1. SERZONE [Suspect]
     Indication: DEPRESSION

REACTIONS (4)
  - CHROMATURIA [None]
  - GALLBLADDER DISORDER [None]
  - JAUNDICE [None]
  - LIVER DISORDER [None]
